FAERS Safety Report 4324615-4 (Version None)
Quarter: 2004Q1

REPORT INFORMATION
  Report Type: 
  Country: None (occurrence: None)
  Receive Date: 20040322
  Receipt Date: 20040311
  Transmission Date: 20041129
  Serious: Yes (Death)
  Sender: FDA-Public Use
  Company Number: 2004PL000021

PATIENT
  Age: 63 Year
  Sex: Male

DRUGS (1)
  1. AZATHIOPRINE [Suspect]
     Indication: IMMUNOSUPPRESSANT DRUG THERAPY
     Dosage: 100 MG; DAILY; ORAL
     Route: 048
     Dates: start: 19890101, end: 19991201

REACTIONS (2)
  - HAEMORRHAGE [None]
  - MYELODYSPLASTIC SYNDROME [None]
